FAERS Safety Report 20602328 (Version 1)
Quarter: 2022Q1

REPORT INFORMATION
  Report Type: Report from Study
  Country: US (occurrence: US)
  Receive Date: 20220316
  Receipt Date: 20220316
  Transmission Date: 20220423
  Serious: Yes (Other)
  Sender: FDA-Public Use
  Company Number: US-NOVARTISTESTPH-NVSC2022US057347

PATIENT
  Sex: Male

DRUGS (1)
  1. GILENYA [Suspect]
     Active Substance: FINGOLIMOD HYDROCHLORIDE
     Indication: Multiple sclerosis
     Dosage: UNK
     Route: 065
     Dates: start: 20111201

REACTIONS (6)
  - Multiple sclerosis relapse [Unknown]
  - Cognitive disorder [Unknown]
  - Neuralgia [Unknown]
  - Movement disorder [Unknown]
  - Pain in extremity [Unknown]
  - Fatigue [Unknown]
